FAERS Safety Report 9670071 (Version 1)
Quarter: 2013Q4

REPORT INFORMATION
  Report Type: Spontaneous
  Country: CA (occurrence: CA)
  Receive Date: 20131105
  Receipt Date: 20131105
  Transmission Date: 20140711
  Serious: Yes (Death)
  Sender: FDA-Public Use
  Company Number: CA-009507513-1311CAN000247

PATIENT
  Age: 81 Year
  Sex: Female

DRUGS (1)
  1. EMEND [Suspect]
     Indication: PRODUCT USED FOR UNKNOWN INDICATION
     Dosage: TRI PACK
     Route: 048

REACTIONS (1)
  - Death [Fatal]
